FAERS Safety Report 9541757 (Version 1)
Quarter: 2013Q3

REPORT INFORMATION
  Report Type: Spontaneous
  Country: FR (occurrence: None)
  Receive Date: 20130918
  Receipt Date: 20130918
  Transmission Date: 20140515
  Serious: Yes (Hospitalization)
  Sender: FDA-Public Use
  Company Number: AUR-APL-2013-07746

PATIENT
  Age: 49 Year
  Sex: Female

DRUGS (9)
  1. RAMIPRIL [Suspect]
     Indication: PRODUCT USED FOR UNKNOWN INDICATION
     Route: 048
  2. LASILIX (FUROSEMIDE) [Suspect]
     Indication: PRODUCT USED FOR UNKNOWN INDICATION
     Route: 048
     Dates: end: 20110628
  3. EXFORGE [Suspect]
     Indication: PRODUCT USED FOR UNKNOWN INDICATION
     Route: 048
     Dates: end: 20110628
  4. ATENOLOL (ATENOLOL) [Concomitant]
  5. TAHOR (ATORVASTATIN CALCIUM) [Concomitant]
  6. GLUCOPHAGE (METFORMIN HYDROCHLORIDE) [Concomitant]
  7. VICTOZA (LIRAGLUTIDE) [Concomitant]
  8. LANTUS (INSULIN GLARGINE) [Concomitant]
  9. ADENURIC (FEBUXOSTAT) [Concomitant]

REACTIONS (6)
  - Lactic acidosis [None]
  - Renal failure acute [None]
  - Hyperkalaemia [None]
  - Blood glucose increased [None]
  - Overdose [None]
  - Iatrogenic injury [None]
